FAERS Safety Report 7922624-7 (Version None)
Quarter: 2011Q4

REPORT INFORMATION
  Report Type: 
  Country: None (occurrence: None)
  Receive Date: 20111117
  Receipt Date: 20110122
  Transmission Date: 20120403
  Serious: No
  Sender: FDA-Public Use
  Company Number: US-AMGEN-USASP2011004151

PATIENT
  Sex: Male

DRUGS (1)
  1. ENBREL [Suspect]
     Indication: SPONDYLITIS
     Dates: start: 20101001

REACTIONS (6)
  - ARTHRALGIA [None]
  - INCORRECT STORAGE OF DRUG [None]
  - ANKYLOSING SPONDYLITIS [None]
  - NAUSEA [None]
  - ASTHENIA [None]
  - DYSPNOEA [None]
